FAERS Safety Report 5576712-3 (Version None)
Quarter: 2007Q4

REPORT INFORMATION
  Report Type: 
  Country: None (occurrence: None)
  Receive Date: 20071228
  Receipt Date: 20071225
  Transmission Date: 20080405
  Serious: Yes (Life-Threatening)
  Sender: FDA-Public Use
  Company Number: JP-JNJFOC-20071206089

PATIENT
  Age: 81 Year
  Sex: Male

DRUGS (2)
  1. FINIBAX [Suspect]
     Indication: PNEUMONIA
     Route: 041
  2. CIPROFLOXACIN [Concomitant]
     Route: 065

REACTIONS (1)
  - RENAL FAILURE ACUTE [None]
